FAERS Safety Report 8604301-2 (Version None)
Quarter: 2012Q3

REPORT INFORMATION
  Report Type: 
  Country: None (occurrence: None)
  Receive Date: 20120807
  Receipt Date: 20120723
  Transmission Date: 20120928
  Serious: Yes (Other)
  Sender: FDA-Public Use
  Company Number: FK201202027

PATIENT

DRUGS (3)
  1. ANESTHETICS NOS (ANESTHETICS NOS) (ANESTHETICS NOS) [Suspect]
     Indication: PRODUCT USED FOR UNKNOWN INDICATION
  2. CEFAZOLIN [Suspect]
     Indication: PRODUCT USED FOR UNKNOWN INDICATION
     Dosage: 1 GM, 4 IN 1 D, INTRAVENOUS (NOT OTHERWISE SPECIFIED)
     Route: 042
  3. MORPHINE [Suspect]
     Indication: PRODUCT USED FOR UNKNOWN INDICATION

REACTIONS (7)
  - CHILLS [None]
  - HYPERHIDROSIS [None]
  - OXYGEN SATURATION DECREASED [None]
  - ANAPHYLACTIC REACTION [None]
  - PROCEDURAL COMPLICATION [None]
  - PARAESTHESIA [None]
  - HYPOTENSION [None]
